FAERS Safety Report 14133640 (Version 1)
Quarter: 2017Q4

REPORT INFORMATION
  Report Type: Spontaneous
  Country: US (occurrence: None)
  Receive Date: 20171026
  Receipt Date: 20171026
  Transmission Date: 20180321
  Serious: No
  Sender: FDA-Public Use
  Company Number: None

PATIENT
  Age: 63 Year
  Sex: Female

DRUGS (1)
  1. LETAIRIS [Suspect]
     Active Substance: AMBRISENTAN
     Indication: PULMONARY ARTERIAL HYPERTENSION
     Route: 048
     Dates: start: 20171001, end: 20171023

REACTIONS (4)
  - Abdominal pain upper [None]
  - Chest pain [None]
  - Chest discomfort [None]
  - Chills [None]

NARRATIVE: CASE EVENT DATE: 20171023
